FAERS Safety Report 17373460 (Version 2)
Quarter: 2020Q1

REPORT INFORMATION
  Report Type: Spontaneous
  Country: US (occurrence: US)
  Receive Date: 20200205
  Receipt Date: 20200211
  Transmission Date: 20200409
  Serious: Yes (Disabling, Other)
  Sender: FDA-Public Use
  Company Number: US-REGENERON PHARMACEUTICALS, INC.-2020-15811

PATIENT

DRUGS (1)
  1. EYLEA [Suspect]
     Active Substance: AFLIBERCEPT
     Indication: RETINAL ARTERY OCCLUSION
     Dosage: MONTHLY, RIGHT EYE
     Route: 031

REACTIONS (3)
  - Drug ineffective [Unknown]
  - Blindness unilateral [Unknown]
  - Off label use [Unknown]
